FAERS Safety Report 11431618 (Version 1)
Quarter: 2015Q3

REPORT INFORMATION
  Report Type: Spontaneous
  Country: PL (occurrence: PL)
  Receive Date: 20150828
  Receipt Date: 20150828
  Transmission Date: 20151125
  Serious: Yes (Other)
  Sender: FDA-Public Use
  Company Number: PHHY2015PL097589

PATIENT
  Age: 43 Year
  Sex: Female

DRUGS (1)
  1. VALPROIC ACID SANDOZ [Suspect]
     Active Substance: VALPROIC ACID
     Indication: PERIPHERAL SENSORY NEUROPATHY
     Route: 065

REACTIONS (5)
  - Stiff person syndrome [Unknown]
  - Altered state of consciousness [Unknown]
  - Myoclonus [Unknown]
  - Hypertonia [None]
  - Hyporeflexia [Unknown]
